FAERS Safety Report 6373946-5 (Version None)
Quarter: 2009Q3

REPORT INFORMATION
  Report Type: 
  Country: None (occurrence: None)
  Receive Date: 20090924
  Receipt Date: 20090522
  Transmission Date: 20100115
  Serious: No
  Sender: FDA-Public Use
  Company Number: US-ASTRAZENECA-2009UW13316

PATIENT
  Sex: Male

DRUGS (4)
  1. SEROQUEL [Suspect]
     Route: 048
  2. LAMOTRIGINE [Concomitant]
  3. SIMVASTATIN [Concomitant]
  4. CANNABIS [Concomitant]

REACTIONS (1)
  - SLEEP APNOEA SYNDROME [None]
